FAERS Safety Report 5314303-X (Version None)
Quarter: 2007Q2

REPORT INFORMATION
  Report Type: 
  Country: None (occurrence: None)
  Receive Date: 20070425
  Receipt Date: 20070411
  Transmission Date: 20071010
  Serious: Yes (Death, Life-Threatening, Hospitalization, Disabling, Other)
  Sender: FDA-Public Use
  Company Number: 07042089

PATIENT
  Age: 73 Year
  Sex: Female

DRUGS (5)
  1. WARFARIN SODIUM [Suspect]
     Indication: ATRIAL FIBRILLATION
     Dosage: 1.5MG, QD, ORAL
     Route: 048
  2. AMIODARONE HCL [Suspect]
     Indication: ATRIAL FIBRILLATION
     Dosage: 300MG, BID, ORAL
     Route: 048
  3. CYCLOPHOSPHAMIDE [Suspect]
     Indication: NON-HODGKIN'S LYMPHOMA
  4. SIMVASTATIN [Concomitant]
  5. ATENOLOL [Concomitant]

REACTIONS (10)
  - ACUTE RESPIRATORY DISTRESS SYNDROME [None]
  - BLOOD PH INCREASED [None]
  - COMPUTERISED TOMOGRAM ABNORMAL [None]
  - DEEP VEIN THROMBOSIS [None]
  - ENTEROCOCCAL INFECTION [None]
  - LUNG INFECTION PSEUDOMONAL [None]
  - MULTI-ORGAN FAILURE [None]
  - PCO2 DECREASED [None]
  - PULMONARY TOXICITY [None]
  - SEPTIC SHOCK [None]
